FAERS Safety Report 7917011-1 (Version None)
Quarter: 2011Q4

REPORT INFORMATION
  Report Type: 
  Country: None (occurrence: None)
  Receive Date: 20111116
  Receipt Date: 20111108
  Transmission Date: 20120403
  Serious: Yes (Other)
  Sender: FDA-Public Use
  Company Number: US-AMGEN-USASP2011058440

PATIENT
  Age: 62 Year
  Sex: Female

DRUGS (1)
  1. ENBREL [Suspect]
     Indication: PRODUCT USED FOR UNKNOWN INDICATION
     Dosage: 50 MG, UNK
     Dates: start: 20110401

REACTIONS (5)
  - INFECTION [None]
  - SINUSITIS [None]
  - URINARY TRACT INFECTION [None]
  - IMMUNE SYSTEM DISORDER [None]
  - RASH PUSTULAR [None]
